FAERS Safety Report 16304508 (Version 1)
Quarter: 2019Q2

REPORT INFORMATION
  Report Type: Spontaneous
  Country: US (occurrence: US)
  Receive Date: 20190513
  Receipt Date: 20190513
  Transmission Date: 20190711
  Serious: No
  Sender: FDA-Public Use
  Company Number: US-PFIZER INC-2019198673

PATIENT
  Age: 54 Year
  Sex: Female
  Weight: 68.27 kg

DRUGS (1)
  1. GABAPENTIN. [Suspect]
     Active Substance: GABAPENTIN
     Dosage: 800 MG, THREE TIMES A DAY (ONE THREE TIMES A DAY BY MOUTH)
     Route: 048
     Dates: end: 2018

REACTIONS (1)
  - Fibromyalgia [Unknown]
